FAERS Safety Report 10786304 (Version 1)
Quarter: 2015Q1

REPORT INFORMATION
  Report Type: Spontaneous
  Country: IT (occurrence: IT)
  Receive Date: 20150211
  Receipt Date: 20150211
  Transmission Date: 20150721
  Serious: Yes (Hospitalization, Other)
  Sender: FDA-Public Use
  Company Number: IT-WATSON-2015-01521

PATIENT
  Age: 78 Year
  Sex: Male

DRUGS (2)
  1. ATENOLOL (UNKNOWN) [Suspect]
     Active Substance: ATENOLOL
     Indication: HYPERTENSION
     Dosage: 75 MG, DAILY
     Route: 048
     Dates: start: 20150116, end: 20150117
  2. ATORVASTATIN CALCIUM (UNKNOWN) [Concomitant]
     Active Substance: ATORVASTATIN CALCIUM
     Indication: PRODUCT USED FOR UNKNOWN INDICATION
     Dosage: UNK, UNKNOWN
     Route: 048

REACTIONS (2)
  - Atrioventricular block second degree [Recovered/Resolved]
  - Bradycardia [Recovered/Resolved]

NARRATIVE: CASE EVENT DATE: 20150117
